FAERS Safety Report 20280143 (Version 1)
Quarter: 2022Q1

REPORT INFORMATION
  Report Type: Spontaneous
  Country: SE (occurrence: SE)
  Receive Date: 20220103
  Receipt Date: 20220103
  Transmission Date: 20220423
  Serious: Yes (Hospitalization, Other)
  Sender: FDA-Public Use
  Company Number: None

PATIENT
  Age: 53 Year
  Sex: Female
  Weight: 71 kg

DRUGS (5)
  1. IBUPROFEN [Suspect]
     Active Substance: IBUPROFEN
     Indication: Nasopharyngitis
     Dosage: 1200 MILLIGRAM, QD
     Route: 048
     Dates: start: 20180306, end: 20180320
  2. SUMATRIPTAN [Concomitant]
     Active Substance: SUMATRIPTAN
     Dosage: 1 AS NECESSARY, (50 MG 1 VID BEHOV)
     Route: 048
  3. AMITRIPTYLINE [Concomitant]
     Active Substance: AMITRIPTYLINE
     Dosage: 10 MILLIGRAM, (1 TILL KV?LLEN)
     Route: 048
  4. ESTRADIOL VALERATE\MEDROXYPROGESTERONE ACETATE [Concomitant]
     Active Substance: ESTRADIOL VALERATE\MEDROXYPROGESTERONE ACETATE
     Dosage: UNK, 2 MG/5 MG 1 TABLETT DAGLIGEN
     Route: 048
  5. DULOXETINE [Concomitant]
     Active Substance: DULOXETINE
     Dosage: 60 MILLIGRAM, (1 TABLETT DAGLIGEN)
     Route: 048

REACTIONS (1)
  - Glomerulonephritis minimal lesion [Recovered/Resolved with Sequelae]

NARRATIVE: CASE EVENT DATE: 20180320
